FAERS Safety Report 9466502 (Version 1)
Quarter: 2013Q3

REPORT INFORMATION
  Report Type: Spontaneous
  Country: US (occurrence: None)
  Receive Date: 20130816
  Receipt Date: 20130816
  Transmission Date: 20140515
  Serious: Yes (Other)
  Sender: FDA-Public Use
  Company Number: None

PATIENT
  Age: 59 Year
  Sex: Female
  Weight: 75.9 kg

DRUGS (11)
  1. VARENICLINE [Suspect]
     Indication: SMOKING CESSATION THERAPY
     Dosage: 0.5MG QD DAYS 1-3 THEN BID DAYS 4-7 SEE ^DOSE OR AMOUNT^ ORAL
     Route: 048
     Dates: start: 20130412, end: 20130418
  2. VARENICLINE [Suspect]
     Dates: start: 20130419, end: 20130704
  3. ZOLOFT (SERTRALINE) [Concomitant]
  4. ISENTRESS (RALTOGRAVIR) [Concomitant]
  5. TRUVADA (TENOFOVIR + EMTRICITABINE) [Concomitant]
  6. SINGULAIR [Concomitant]
  7. ADVAIR (FLUTICASONE-SALMETEROL) [Concomitant]
  8. SPIRIVA (TIOTROPIUM BROMIDE MONOHYDRATE) [Concomitant]
  9. ATIVAN (LORAZEPAM) [Concomitant]
  10. HCTZ (HYDROCHLOROTHIAZIDE) [Concomitant]
  11. OXYCODONE [Concomitant]

REACTIONS (1)
  - Cervix carcinoma [None]
